FAERS Safety Report 5706029-5 (Version None)
Quarter: 2008Q2

REPORT INFORMATION
  Report Type: 
  Country: None (occurrence: None)
  Receive Date: 20080415
  Receipt Date: 20080403
  Transmission Date: 20081010
  Serious: Yes (Other)
  Sender: FDA-Public Use
  Company Number: US-PFIZER INC-2008030730

PATIENT
  Sex: Female
  Weight: 63.5 kg

DRUGS (1)
  1. CHANTIX [Suspect]
     Indication: SMOKING CESSATION THERAPY

REACTIONS (8)
  - FATIGUE [None]
  - INSOMNIA [None]
  - INTENTIONAL DRUG MISUSE [None]
  - MOOD ALTERED [None]
  - NIGHTMARE [None]
  - NO ADVERSE EVENT [None]
  - PARANOIA [None]
  - WEIGHT DECREASED [None]
